FAERS Safety Report 8943669 (Version 3)
Quarter: 2013Q2

REPORT INFORMATION
  Report Type: Report from Study
  Country: DE (occurrence: DE)
  Receive Date: 20121203
  Receipt Date: 20130429
  Transmission Date: 20140414
  Serious: Yes (Death, Other)
  Sender: FDA-Public Use
  Company Number: DE-OTSUKA-EU-2012-10001

PATIENT
  Sex: Female
  Weight: 60 kg

DRUGS (23)
  1. SAMSCA [Suspect]
     Indication: INAPPROPRIATE ANTIDIURETIC HORMONE SECRETION
     Dosage: 7.5 MG MILLIGRAM(S), DAILY DOSE
     Route: 048
     Dates: start: 20111221, end: 20120102
  2. SAMSCA [Suspect]
     Dosage: 7.5 MG MILLIGRAM(S), QOD
     Route: 048
     Dates: start: 20120103, end: 20130204
  3. ATACAND [Concomitant]
     Indication: CARDIAC FAILURE CONGESTIVE
     Dosage: 16 MG MILLIGRAM(S), DAILY DOSE
     Route: 048
     Dates: end: 2012
  4. ATACAND [Concomitant]
     Indication: HYPERTENSION
  5. TOREM [Concomitant]
     Indication: CARDIAC FAILURE CONGESTIVE
     Dosage: 5 MG MILLIGRAM(S), DAILY DOSE
     Route: 048
     Dates: end: 20111215
  6. CEFTRIAXONE [Concomitant]
     Indication: PNEUMONIA
     Dosage: 2 G GRAM(S), DAILY DOSE
     Route: 042
     Dates: start: 20111215, end: 20111222
  7. KLACID [Concomitant]
     Indication: PNEUMONIA
     Dosage: 500 MG MILLIGRAM(S), DAILY DOSE
     Route: 048
     Dates: start: 20111216, end: 20111227
  8. COLCHIN [Concomitant]
     Indication: GOUT
     Dosage: 2 MG MILLIGRAM(S), DAILY DOSE
     Route: 048
     Dates: start: 20111221, end: 20111222
  9. NEBIVOLOL [Concomitant]
     Indication: HYPERTENSION
     Dosage: 5 MG MILLIGRAM(S), DAILY DOSE
     Route: 048
     Dates: end: 20111216
  10. NEBIVOLOL [Concomitant]
     Indication: CARDIAC FAILURE CONGESTIVE
     Dosage: 10 MG MILLIGRAM(S), DAILY DOSE
     Route: 048
     Dates: start: 20111217
  11. ASS [Concomitant]
     Indication: CORONARY ARTERY DISEASE
     Dosage: 100 MG MILLIGRAM(S), DAILY DOSE
     Route: 048
  12. CARMEN [Concomitant]
     Indication: HYPERTENSION
     Dosage: 10 MG MILLIGRAM(S), DAILY DOSE
     Route: 048
     Dates: start: 20111220, end: 2012
  13. FRAGMIN P [Concomitant]
     Indication: THROMBOSIS PROPHYLAXIS
     Dosage: 1 DF DOSAGE FORM, DAILY DOSE
     Route: 058
     Dates: start: 20111215, end: 20111222
  14. ALLOPURINOL [Concomitant]
     Indication: GOUTY ARTHRITIS
     Dosage: 100 MG MILLIGRAM(S), DAILY DOSE
     Route: 048
     Dates: start: 20111223, end: 2012
  15. ATACAND [Concomitant]
     Indication: HYPERTENSION
     Dosage: 32 MG MILLIGRAM(S), DAILY DOSE
     Route: 048
     Dates: start: 2012
  16. SALINE [Concomitant]
     Dosage: 154 MMOL MILLIMOLE(S), DAILY DOSE
     Dates: start: 20111215, end: 20121215
  17. SALINE [Concomitant]
     Dosage: 308 MMOL MILLIMOLE(S), DAILY DOSE
     Dates: start: 20111216, end: 20121216
  18. SALINE [Concomitant]
     Dosage: 231 MMOL MILLIMOLE(S), DAILY DOSE
     Dates: start: 20111217, end: 20111217
  19. SALINE [Concomitant]
     Dosage: 154 MMOL MILLIMOLE(S), DAILY DOSE
     Dates: start: 20111218, end: 20111218
  20. SALINE [Concomitant]
     Dosage: 154 MMOL MILLIMOLE(S), DAILY DOSE
     Dates: start: 20111219, end: 20111219
  21. SALINE [Concomitant]
     Dosage: 231 MMOL MILLIMOLE(S), DAILY DOSE
     Dates: start: 20111220, end: 20111220
  22. SALINE [Concomitant]
     Dosage: 154 MMOL MILLIMOLE(S), DAILY DOSE
     Dates: start: 20111221, end: 20111221
  23. SALINE [Concomitant]
     Dosage: 308 MMOL MILLIMOLE(S), DAILY DOSE
     Dates: start: 20111222, end: 20111222

REACTIONS (7)
  - Death [Fatal]
  - Cerebrovascular accident [Fatal]
  - Hypokalaemia [Recovering/Resolving]
  - Rash papular [Recovering/Resolving]
  - Hypertension [Recovered/Resolved]
  - Wrong technique in drug usage process [Unknown]
  - Incorrect drug administration rate [Unknown]
